FAERS Safety Report 16988233 (Version 1)
Quarter: 2019Q4

REPORT INFORMATION
  Report Type: Spontaneous
  Country: ES (occurrence: ES)
  Receive Date: 20191104
  Receipt Date: 20191104
  Transmission Date: 20200122
  Serious: Yes (Other)
  Sender: FDA-Public Use
  Company Number: ES-ACCORD-159697

PATIENT
  Age: 45 Year
  Sex: Female

DRUGS (3)
  1. ESCITALOPRAM [Suspect]
     Active Substance: ESCITALOPRAM OXALATE
     Indication: BEREAVEMENT
     Dosage: STRENGTH :  15 MG 56 TABLET
     Route: 048
     Dates: start: 20190925, end: 2019
  2. TRANKIMAZIN [Concomitant]
     Active Substance: ALPRAZOLAM
     Dosage: 1-1-1, STRENGTH : 0.25 MG TABLET, 30 TABLETS
     Dates: start: 20190408
  3. ATORVASTATIN [Concomitant]
     Active Substance: ATORVASTATIN
     Dosage: 0-0-1, STRENGTH : 20 MG 28 TABLET
     Dates: start: 20190408

REACTIONS (3)
  - Depressed mood [Unknown]
  - Tongue discolouration [Unknown]
  - Glossitis [Unknown]

NARRATIVE: CASE EVENT DATE: 2019
